FAERS Safety Report 14211830 (Version 1)
Quarter: 2017Q4

REPORT INFORMATION
  Report Type: Spontaneous
  Country: PL (occurrence: PL)
  Receive Date: 20171122
  Receipt Date: 20171122
  Transmission Date: 20180321
  Serious: Yes (Hospitalization)
  Sender: FDA-Public Use
  Company Number: PL-JNJFOC-20171030312

PATIENT
  Age: 33 Year
  Sex: Male
  Weight: 92 kg

DRUGS (1)
  1. SIMPONI [Suspect]
     Active Substance: GOLIMUMAB
     Indication: ANKYLOSING SPONDYLITIS
     Route: 058
     Dates: start: 20150302, end: 20160115

REACTIONS (7)
  - Pulmonary embolism [Recovering/Resolving]
  - Angiogram [Recovering/Resolving]
  - Arrhythmia [Recovering/Resolving]
  - Thrombosis [Recovering/Resolving]
  - Dyspnoea [Recovering/Resolving]
  - Ventricular arrhythmia [Recovering/Resolving]
  - Fibrin D dimer increased [Recovering/Resolving]

NARRATIVE: CASE EVENT DATE: 20160128
